FAERS Safety Report 24348368 (Version 1)
Quarter: 2024Q3

REPORT INFORMATION
  Report Type: Spontaneous
  Country: US (occurrence: US)
  Receive Date: 20240923
  Receipt Date: 20240923
  Transmission Date: 20241016
  Serious: Yes (Other)
  Sender: SPECGX
  Company Number: US-SPECGX-T202401459

PATIENT
  Age: 11 Month
  Sex: Female

DRUGS (3)
  1. POSACONAZOLE [Suspect]
     Active Substance: POSACONAZOLE
     Indication: Antifungal prophylaxis
     Dosage: 100 MILLIGRAM, QD
  2. POSACONAZOLE [Suspect]
     Active Substance: POSACONAZOLE
     Dosage: 150 MILLIGRAM, QD
  3. VORICONAZOLE [Concomitant]
     Active Substance: VORICONAZOLE
     Indication: Antifungal prophylaxis
     Dosage: 100 MILLIGRAM, TID

REACTIONS (4)
  - Device occlusion [Unknown]
  - Drug level below therapeutic [Unknown]
  - Product use issue [Unknown]
  - Wrong technique in product usage process [Unknown]
